FAERS Safety Report 12095659 (Version 1)
Quarter: 2016Q1

REPORT INFORMATION
  Report Type: Spontaneous
  Country: US (occurrence: US)
  Receive Date: 20160219
  Receipt Date: 20160219
  Transmission Date: 20160526
  Serious: Yes (Death, Hospitalization)
  Sender: FDA-Public Use
  Company Number: US-JNJFOC-20160208024

PATIENT
  Age: 52 Year
  Sex: Male
  Weight: 99.79 kg

DRUGS (2)
  1. TYLENOL EXTRA STRENGTH [Suspect]
     Active Substance: ACETAMINOPHEN
     Indication: INSOMNIA
     Dosage: 2 CAPLETS, WHEN NEEDED, FOR YEARS
     Route: 048
  2. TYLENOL EXTRA STRENGTH [Suspect]
     Active Substance: ACETAMINOPHEN
     Indication: HEADACHE
     Dosage: 2 CAPLETS, WHEN NEEDED, FOR YEARS
     Route: 048

REACTIONS (4)
  - Product use issue [Fatal]
  - Liver disorder [Fatal]
  - Off label use [Fatal]
  - Weight decreased [Fatal]
